FAERS Safety Report 20709506 (Version 1)
Quarter: 2022Q2

REPORT INFORMATION
  Report Type: Spontaneous
  Country: US (occurrence: None)
  Receive Date: 20220413
  Receipt Date: 20220413
  Transmission Date: 20220721
  Serious: Yes (Other)
  Sender: FDA-Public Use
  Company Number: None

PATIENT
  Sex: Male

DRUGS (1)
  1. ISOVUE 300 [Suspect]
     Active Substance: IOPAMIDOL
     Indication: Prostate cancer
     Route: 042

REACTIONS (2)
  - Vomiting [None]
  - Contrast media reaction [None]

NARRATIVE: CASE EVENT DATE: 20220408
